FAERS Safety Report 18395797 (Version 31)
Quarter: 2025Q3

REPORT INFORMATION
  Report Type: Report from Study
  Country: US (occurrence: US)
  Receive Date: 20201018
  Receipt Date: 20250806
  Transmission Date: 20251021
  Serious: Yes (Hospitalization, Other)
  Sender: TAKEDA
  Company Number: US-SHIRE-US202033968

PATIENT
  Age: 76 Year
  Sex: Female
  Weight: 50 kg

DRUGS (42)
  1. HUMAN IMMUNOGLOBULIN G [Suspect]
     Active Substance: HUMAN IMMUNOGLOBULIN G
     Indication: Immunodeficiency common variable
     Dosage: 12 GRAM, 1/WEEK
  2. DIPHENHYDRAMINE [Concomitant]
     Active Substance: DIPHENHYDRAMINE
  3. LANSOPRAZOLE [Concomitant]
     Active Substance: LANSOPRAZOLE
  4. BUDESONIDE [Concomitant]
     Active Substance: BUDESONIDE
  5. SYMBICORT [Concomitant]
     Active Substance: BUDESONIDE\FORMOTEROL FUMARATE DIHYDRATE
  6. EZETIMIBE AND SIMVASTATIN [Concomitant]
     Active Substance: EZETIMIBE\SIMVASTATIN
  7. EPINEPHRINE [Concomitant]
     Active Substance: EPINEPHRINE
  8. Flublock [Concomitant]
  9. SYNTHROID [Concomitant]
     Active Substance: LEVOTHYROXINE SODIUM
  10. METOPROLOL TARTRATE [Concomitant]
     Active Substance: METOPROLOL TARTRATE
  11. MINERALS\VITAMINS [Concomitant]
     Active Substance: MINERALS\VITAMINS
  12. PEPCID [Concomitant]
     Active Substance: FAMOTIDINE
  13. MELATONIN [Concomitant]
     Active Substance: MELATONIN
  14. ACETAMINOPHEN [Concomitant]
     Active Substance: ACETAMINOPHEN
  15. SINGULAIR [Concomitant]
     Active Substance: MONTELUKAST SODIUM
  16. ZOFRAN [Concomitant]
     Active Substance: ONDANSETRON HYDROCHLORIDE
  17. IRON [Concomitant]
     Active Substance: IRON
  18. GAVISCON [Concomitant]
     Active Substance: ALUMINUM HYDROXIDE\MAGNESIUM CARBONATE
  19. TUMS FRESHERS [Concomitant]
     Active Substance: CALCIUM CARBONATE
  20. CRESTOR [Concomitant]
     Active Substance: ROSUVASTATIN CALCIUM
  21. VALIUM [Concomitant]
     Active Substance: DIAZEPAM
  22. LAMICTAL [Concomitant]
     Active Substance: LAMOTRIGINE
  23. QVAR REDIHALER [Concomitant]
     Active Substance: BECLOMETHASONE DIPROPIONATE
  24. ASPIRIN [Concomitant]
     Active Substance: ASPIRIN
  25. LIDOCAINE [Concomitant]
     Active Substance: LIDOCAINE
  26. DOXYCYCLINE HYCLATE [Concomitant]
     Active Substance: DOXYCYCLINE HYCLATE
  27. PANTOPRAZOLE [Concomitant]
     Active Substance: PANTOPRAZOLE
  28. ALBUTEROL SULFATE [Concomitant]
     Active Substance: ALBUTEROL SULFATE
  29. XARELTO [Concomitant]
     Active Substance: RIVAROXABAN
  30. PENTOLINIUM TARTRATE [Concomitant]
     Active Substance: PENTOLINIUM TARTRATE
  31. MINERALS\VITAMINS [Concomitant]
     Active Substance: MINERALS\VITAMINS
  32. PREDNISONE [Concomitant]
     Active Substance: PREDNISONE
  33. PROZAC [Concomitant]
     Active Substance: FLUOXETINE HYDROCHLORIDE
  34. METAPROTERENOL SULFATE [Concomitant]
     Active Substance: METAPROTERENOL SULFATE
  35. DOXYCYCLINE [Concomitant]
     Active Substance: DOXYCYCLINE
  36. METAPROTERENOL [Concomitant]
     Active Substance: METAPROTERENOL
  37. REFRESH OPTIVE [Concomitant]
     Active Substance: CARBOXYMETHYLCELLULOSE SODIUM\GLYCERIN
  38. TUMS [Concomitant]
     Active Substance: CALCIUM CARBONATE
  39. DIPHENHYDRAMINE HYDROCHLORIDE [Concomitant]
     Active Substance: DIPHENHYDRAMINE HYDROCHLORIDE
  40. TRAMADOL HCL [Concomitant]
     Active Substance: TRAMADOL HYDROCHLORIDE
  41. DULERA [Concomitant]
     Active Substance: FORMOTEROL FUMARATE DIHYDRATE\MOMETASONE FUROATE
  42. BREO ELLIPTA [Concomitant]
     Active Substance: FLUTICASONE FUROATE\VILANTEROL TRIFENATATE

REACTIONS (25)
  - Fall [Unknown]
  - Cataract [Unknown]
  - Hip fracture [Unknown]
  - Pelvic fracture [Unknown]
  - Pyrexia [Unknown]
  - Dyspnoea [Not Recovered/Not Resolved]
  - Rhinorrhoea [Unknown]
  - Head injury [Unknown]
  - Infection [Unknown]
  - Seasonal allergy [Unknown]
  - Respiratory tract infection [Recovered/Resolved]
  - Wheezing [Unknown]
  - Cough [Unknown]
  - Illness [Unknown]
  - Nasopharyngitis [Unknown]
  - Product dose omission issue [Unknown]
  - Multiple allergies [Unknown]
  - Sinusitis [Not Recovered/Not Resolved]
  - Haematoma [Unknown]
  - Ear pain [Unknown]
  - Somnolence [Unknown]
  - Oropharyngeal pain [Unknown]
  - Chills [Unknown]
  - Fatigue [Unknown]
  - Headache [Unknown]

NARRATIVE: CASE EVENT DATE: 20210104
